FAERS Safety Report 8357043-5 (Version None)
Quarter: 2012Q2

REPORT INFORMATION
  Report Type: 
  Country: None (occurrence: None)
  Receive Date: 20120514
  Receipt Date: 20120509
  Transmission Date: 20120825
  Serious: Yes (Death, Life-Threatening, Hospitalization)
  Sender: FDA-Public Use
  Company Number: CN-SANOFI-AVENTIS-2012SA031919

PATIENT
  Age: 70 Year
  Sex: Male
  Weight: 53.5 kg

DRUGS (1)
  1. DOCETAXEL [Suspect]
     Route: 042
     Dates: start: 20111111, end: 20120207

REACTIONS (1)
  - ACUTE HEPATIC FAILURE [None]
